FAERS Safety Report 13832878 (Version 7)
Quarter: 2021Q4

REPORT INFORMATION
  Report Type: Spontaneous
  Country: US (occurrence: US)
  Receive Date: 20170804
  Receipt Date: 20211217
  Transmission Date: 20220303
  Serious: Yes (Other)
  Sender: FDA-Public Use
  Company Number: US-PFIZER INC-2017336460

PATIENT
  Age: 76 Year
  Sex: Female
  Weight: 81.633 kg

DRUGS (14)
  1. LYRICA [Suspect]
     Active Substance: PREGABALIN
     Indication: Pain in extremity
     Dosage: 75 MG, TWICE A DAY (IN THE AM AND 1 IN THE AFTERNOON)
     Route: 048
  2. LYRICA [Suspect]
     Active Substance: PREGABALIN
     Dosage: UNK
  3. CLONIDINE [Concomitant]
     Active Substance: CLONIDINE
     Indication: Blood pressure abnormal
     Dosage: 0.2 MG, 2X/DAY
     Route: 048
  4. HYDROCHLOROTHIAZIDE\VALSARTAN [Concomitant]
     Active Substance: HYDROCHLOROTHIAZIDE\VALSARTAN
     Indication: Blood pressure abnormal
     Dosage: 1 DF, DAILY[VALSARTAN:320/ HCT:25]
     Route: 048
  5. METFORMIN [Concomitant]
     Active Substance: METFORMIN HYDROCHLORIDE
     Indication: Type 2 diabetes mellitus
     Dosage: 1000 MG, 2X/DAY
     Route: 048
  6. SIMVASTATIN [Concomitant]
     Active Substance: SIMVASTATIN
     Indication: Blood cholesterol
     Dosage: 10 MG, 1X/DAY (AT BEDTIME)
     Route: 048
  7. MELOXICAM [Concomitant]
     Active Substance: MELOXICAM
     Indication: Arthritis
     Dosage: 7.5 MG, 1X/DAY
     Route: 048
  8. OMEPRAZOLE [Concomitant]
     Active Substance: OMEPRAZOLE
     Indication: Pain
     Dosage: 40 MG, DAILY
     Route: 048
  9. KLOR-CON [Concomitant]
     Active Substance: POTASSIUM CHLORIDE
     Indication: Heart rate irregular
     Dosage: 20 MG, 1X/DAY (IN THE MORNING)
     Route: 048
  10. ASPIRIN [Concomitant]
     Active Substance: ASPIRIN
     Indication: Heart rate irregular
     Dosage: 81 MG, DAILY
     Route: 048
  11. VITAMIN D3 [Concomitant]
     Active Substance: CHOLECALCIFEROL
     Indication: Vitamin supplementation
     Dosage: UNK, 1X/DAY
     Route: 048
  12. PAROXETINE [Concomitant]
     Active Substance: PAROXETINE
     Indication: Panic attack
     Dosage: 3 DF, 1X/DAY
  13. PAROXETINE [Concomitant]
     Active Substance: PAROXETINE
     Dosage: 20 MG
  14. PAROXETINE [Concomitant]
     Active Substance: PAROXETINE
     Dosage: 40 MG, DAILY
     Route: 048
     Dates: start: 2018

REACTIONS (8)
  - Cataract [Unknown]
  - Headache [Unknown]
  - Weight decreased [Unknown]
  - Pain [Unknown]
  - Hypersensitivity [Unknown]
  - Asthenia [Unknown]
  - Memory impairment [Unknown]
  - Dysphonia [Unknown]
